FAERS Safety Report 4556929-7 (Version None)
Quarter: 2005Q1

REPORT INFORMATION
  Report Type: 
  Country: None (occurrence: None)
  Receive Date: 20050118
  Receipt Date: 20050103
  Transmission Date: 20050727
  Serious: Yes (Other)
  Sender: FDA-Public Use
  Company Number: SUS1-2005-00021

PATIENT
  Age: 46 Year
  Sex: Male

DRUGS (4)
  1. PENTASA [Suspect]
     Indication: CROHN'S DISEASE
     Dosage: ORAL
     Route: 048
  2. AZATHIOPRINE [Concomitant]
  3. SYSTEMIC STEROID [Concomitant]
  4. BUDESONIDE (BUDESONIDE) [Concomitant]

REACTIONS (13)
  - ABDOMINAL PAIN UPPER [None]
  - ABSCESS [None]
  - ANXIETY [None]
  - ASTHENIA [None]
  - DIARRHOEA [None]
  - DISEASE RECURRENCE [None]
  - DRUG INTOLERANCE [None]
  - DYSPNOEA [None]
  - INFLAMMATION [None]
  - LEUKOPENIA [None]
  - NAUSEA [None]
  - PERIANAL ABSCESS [None]
  - URTICARIA [None]
